FAERS Safety Report 5914983-1 (Version None)
Quarter: 2008Q4

REPORT INFORMATION
  Report Type: 
  Country: None (occurrence: None)
  Receive Date: 20081010
  Receipt Date: 20081002
  Transmission Date: 20090506
  Serious: Yes (Life-Threatening)
  Sender: FDA-Public Use
  Company Number: JP-GENENTECH-269118

PATIENT
  Sex: Male

DRUGS (7)
  1. RITUXAN [Suspect]
     Indication: LYMPHOMA
     Dosage: 305.55 MG, UNK
     Route: 042
     Dates: start: 20080805
  2. CALONAL [Concomitant]
     Indication: PREMEDICATION
     Dosage: 400 MG, SINGLE
     Route: 048
     Dates: start: 20080505, end: 20080505
  3. POLARAMINE [Concomitant]
     Indication: PREMEDICATION
     Dosage: 2 MG, SINGLE
     Route: 048
     Dates: start: 20080505, end: 20080505
  4. CYCLOPHOSPHAMIDE [Concomitant]
     Indication: DRUG USE FOR UNKNOWN INDICATION
  5. DOXORUBICIN HCL [Concomitant]
     Indication: DRUG USE FOR UNKNOWN INDICATION
  6. VINCRISTINE [Concomitant]
     Indication: DRUG USE FOR UNKNOWN INDICATION
  7. PREDNISONE TAB [Concomitant]
     Indication: DRUG USE FOR UNKNOWN INDICATION

REACTIONS (1)
  - OBSTRUCTIVE AIRWAYS DISORDER [None]
